FAERS Safety Report 11301894 (Version 1)
Quarter: 2015Q3

REPORT INFORMATION
  Report Type: Spontaneous
  Country: US (occurrence: US)
  Receive Date: 20150722
  Receipt Date: 20150722
  Transmission Date: 20151125
  Serious: No
  Sender: FDA-Public Use
  Company Number: US-ELI_LILLY_AND_COMPANY-US201005003505

PATIENT
  Age: 54 Year
  Sex: Female

DRUGS (2)
  1. EVISTA [Suspect]
     Active Substance: RALOXIFENE HYDROCHLORIDE
     Indication: OSTEOPOROSIS
     Dosage: 60 MG, QOD
     Dates: start: 200912, end: 20100512
  2. EVISTA [Suspect]
     Active Substance: RALOXIFENE HYDROCHLORIDE
     Dosage: 30 MG, DAILY (1/D)

REACTIONS (3)
  - Intentional product misuse [Recovered/Resolved]
  - Drug prescribing error [Recovered/Resolved]
  - Medication error [Recovered/Resolved]
